FAERS Safety Report 5631710-6 (Version None)
Quarter: 2008Q1

REPORT INFORMATION
  Report Type: 
  Country: None (occurrence: None)
  Receive Date: 20080220
  Receipt Date: 20080212
  Transmission Date: 20080703
  Serious: Yes (Hospitalization)
  Sender: FDA-Public Use
  Company Number: FR-JNJFOC-20080203092

PATIENT
  Sex: Female

DRUGS (4)
  1. RISPERDAL [Suspect]
     Indication: PSYCHOTIC DISORDER
     Route: 048
  2. EFFEXOR [Suspect]
     Indication: PSYCHOTIC DISORDER
     Route: 048
  3. RIVOTRIL [Suspect]
     Indication: PSYCHOTIC DISORDER
     Route: 048
  4. IMPLANON [Concomitant]
     Indication: DRUG USE FOR UNKNOWN INDICATION

REACTIONS (2)
  - ALTERED STATE OF CONSCIOUSNESS [None]
  - MALAISE [None]
